FAERS Safety Report 6967621-3 (Version None)
Quarter: 2010Q3

REPORT INFORMATION
  Report Type: 
  Country: None (occurrence: None)
  Receive Date: 20100907
  Receipt Date: 20100827
  Transmission Date: 20110219
  Serious: Yes (Hospitalization)
  Sender: FDA-Public Use
  Company Number: DE-ALEXION-A201000951

PATIENT

DRUGS (13)
  1. SOLIRIS [Suspect]
     Indication: PAROXYSMAL NOCTURNAL HAEMOGLOBINURIA
     Dosage: 600 MG, UNK
     Route: 042
     Dates: start: 20091202, end: 20091201
  2. SOLIRIS [Suspect]
     Dosage: 900 MG, UNK
     Route: 042
     Dates: start: 20091201, end: 20100701
  3. SOLIRIS [Suspect]
     Dosage: 900 MG, UNK
     Route: 042
     Dates: start: 20100806
  4. MARCUMAR [Concomitant]
     Dosage: ACCORDING TO INR @LEAST 1/2 TABLET
     Route: 048
  5. ACETAMINOPHEN [Concomitant]
     Dosage: 500 MG, QID
     Route: 048
  6. TORASEMID [Concomitant]
     Dosage: 10 MG, BID
     Route: 048
  7. ACETYLSALICYLIC ACID [Concomitant]
     Dosage: 100 MG, QD
     Route: 048
  8. AMIODARON                          /00133102/ [Concomitant]
     Dosage: 200 MG, QD
     Route: 048
  9. PANTOZOL                           /01263202/ [Concomitant]
     Dosage: 40 MG, QD
     Route: 048
  10. METOPROLOL TARTRATE [Concomitant]
     Dosage: 47.5 UNK, QD
     Route: 048
  11. FERROUS SULFATE TAB [Concomitant]
     Dosage: 2 QD
     Route: 048
  12. EUNERPAN [Concomitant]
     Dosage: 5 ML, QD AT HS
     Route: 048
  13. METOCLOPAMID [Concomitant]
     Dosage: 20 GTT, QD
     Route: 048

REACTIONS (4)
  - ATRIAL FIBRILLATION [None]
  - MYOCARDIAL INFARCTION [None]
  - PNEUMONIA [None]
  - TACHYCARDIA [None]
